FAERS Safety Report 5313016-8 (Version None)
Quarter: 2007Q2

REPORT INFORMATION
  Report Type: 
  Country: None (occurrence: None)
  Receive Date: 20070430
  Receipt Date: 20070418
  Transmission Date: 20071010
  Serious: Yes (Hospitalization, Other)
  Sender: FDA-Public Use
  Company Number: FI-PFIZER INC-2007029495

PATIENT
  Sex: Male

DRUGS (15)
  1. LYRICA [Suspect]
     Indication: DIABETIC NEUROPATHY
     Route: 048
     Dates: start: 20070103, end: 20070104
  2. LYRICA [Suspect]
     Indication: GENERALISED ANXIETY DISORDER
  3. EXPROS [Concomitant]
     Indication: BENIGN PROSTATIC HYPERPLASIA
     Route: 048
  4. METOPROLOL SUCCINATE [Concomitant]
     Dosage: DAILY DOSE:100MG
     Route: 048
  5. OMEPRAZOLE [Concomitant]
     Route: 048
  6. IMOVANE [Concomitant]
     Route: 048
  7. LIPITOR [Concomitant]
     Route: 048
  8. ISMOX [Concomitant]
     Route: 048
  9. MOVICOL [Concomitant]
     Route: 048
  10. PLAVIX [Concomitant]
     Route: 048
  11. ACETYLSALICYLIC ACID SRT [Concomitant]
     Route: 048
  12. FURESIS SPECIAL [Concomitant]
  13. COZAAR [Concomitant]
     Route: 048
  14. THYROXIN [Concomitant]
     Route: 048
  15. LANTUS [Concomitant]
     Indication: DIABETES MELLITUS

REACTIONS (4)
  - FATIGUE [None]
  - HYPOTENSION [None]
  - PNEUMONIA [None]
  - PNEUMONIA ASPIRATION [None]
